FAERS Safety Report 6960777-8 (Version None)
Quarter: 2010Q3

REPORT INFORMATION
  Report Type: 
  Country: None (occurrence: None)
  Receive Date: 20100901
  Receipt Date: 20100825
  Transmission Date: 20110219
  Serious: Yes (Hospitalization)
  Sender: FDA-Public Use
  Company Number: IT-ROCHE-723243

PATIENT
  Sex: Female

DRUGS (8)
  1. CELLCEPT [Suspect]
     Indication: GLOMERULONEPHRITIS MEMBRANOUS
     Dosage: FREQUENCY: DAILY, ROUT REPORTED AS OS.
     Route: 048
     Dates: start: 20100718, end: 20100722
  2. EUTIROX [Concomitant]
     Indication: HYPOTHYROIDISM
     Dosage: DOSE: 100 MICROGRAM, ROUT REPORTED AS OS, DRUG REPORTED AS LEVOTIROXIN/EUTIROX.
     Route: 048
  3. ASPIRIN [Concomitant]
     Dosage: DRUG REPORTED AS ACETYLSALICYLIC ACID/ CARDIOASPIRIN, ROUT REPORTED AS OS.
     Route: 048
  4. TENORMIN [Concomitant]
     Dosage: ROUT REPORTED AS OS.
     Route: 048
  5. TRIATEC [Concomitant]
     Dosage: ROUT REPORTED AS OS.
     Route: 048
  6. LOSAPREX [Concomitant]
     Dosage: ROUT REPORTED AS OS.
     Route: 048
  7. CARDURA [Concomitant]
     Route: 048
  8. TORVAST [Concomitant]
     Route: 048

REACTIONS (3)
  - ABDOMINAL PAIN UPPER [None]
  - BALANCE DISORDER [None]
  - NAUSEA [None]
